FAERS Safety Report 16527598 (Version 2)
Quarter: 2020Q4

REPORT INFORMATION
  Report Type: Spontaneous
  Country: PT (occurrence: PT)
  Receive Date: 20190703
  Receipt Date: 20201202
  Transmission Date: 20210113
  Serious: Yes (Other)
  Sender: FDA-Public Use
  Company Number: PT-MYLANLABS-2019M1061390

PATIENT
  Age: 73 Year
  Sex: Male

DRUGS (1)
  1. AMIODARONE [Suspect]
     Active Substance: AMIODARONE
     Indication: PRODUCT USED FOR UNKNOWN INDICATION
     Dosage: UNK

REACTIONS (10)
  - Eyelid oedema [Unknown]
  - Antinuclear antibody positive [Unknown]
  - Dry mouth [Unknown]
  - Respiratory failure [Unknown]
  - Decreased appetite [Unknown]
  - Skin exfoliation [Unknown]
  - Organising pneumonia [Unknown]
  - Interstitial lung disease [Unknown]
  - Weight decreased [Unknown]
  - Dyspnoea [Unknown]
